FAERS Safety Report 5039107-7 (Version None)
Quarter: 2006Q2

REPORT INFORMATION
  Report Type: 
  Country: None (occurrence: None)
  Receive Date: 20060626
  Receipt Date: 20060614
  Transmission Date: 20061013
  Serious: Yes (Other)
  Sender: FDA-Public Use
  Company Number: TRP_0724_2006

PATIENT
  Age: 46 Year
  Sex: Female
  Weight: 113.3993 kg

DRUGS (6)
  1. RIBASPHERE/RIBAVIRIN/THREE RIVERS PHARMA/200MG PEG INTRON [Suspect]
     Indication: HEPATITIS C
     Dosage: 600 MG BID PO
     Dates: start: 20060111
  2. LORAZEPAM [Concomitant]
  3. RISPERDAL [Concomitant]
  4. TRAZODONE HCL [Concomitant]
  5. VICODIN [Concomitant]
  6. PEG-INTRON [Suspect]
     Indication: HEPATITIS C
     Dosage: 1DF QWK SC
     Route: 058
     Dates: start: 20060111

REACTIONS (4)
  - ASTHENIA [None]
  - BLOOD PRESSURE DECREASED [None]
  - DEHYDRATION [None]
  - DYSGEUSIA [None]
